FAERS Safety Report 23664050 (Version 2)
Quarter: 2024Q1

REPORT INFORMATION
  Report Type: Spontaneous
  Country: AU (occurrence: AU)
  Receive Date: 20240322
  Receipt Date: 20240325
  Transmission Date: 20240410
  Serious: Yes (Hospitalization, Other)
  Sender: FDA-Public Use
  Company Number: AU-JNJFOC-20240337616

PATIENT
  Age: 47 Year
  Sex: Male

DRUGS (10)
  1. INVEGA [Suspect]
     Active Substance: PALIPERIDONE
     Indication: Product used for unknown indication
     Route: 065
     Dates: start: 2017
  2. BISOPROLOL FUMARATE [Suspect]
     Active Substance: BISOPROLOL FUMARATE
     Indication: Blood pressure decreased
     Route: 065
     Dates: start: 2017
  3. RAMIPRIL [Suspect]
     Active Substance: RAMIPRIL
     Indication: Product used for unknown indication
     Route: 065
     Dates: start: 2017
  4. ENTRESTO [Concomitant]
     Active Substance: SACUBITRIL\VALSARTAN
  5. AMISULPRIDE [Concomitant]
     Active Substance: AMISULPRIDE
     Dates: start: 2016
  6. ARIPIPRAZOLE [Concomitant]
     Active Substance: ARIPIPRAZOLE
  7. METFORMIN HYDROCHLORIDE [Concomitant]
     Active Substance: METFORMIN HYDROCHLORIDE
  8. MIRTAZAPINE [Concomitant]
     Active Substance: MIRTAZAPINE
  9. OLANZAPINE [Concomitant]
     Active Substance: OLANZAPINE
  10. QUETIAPINE FUMARATE [Concomitant]
     Active Substance: QUETIAPINE FUMARATE

REACTIONS (14)
  - Blood pressure decreased [Recovered/Resolved]
  - Borderline personality disorder [Unknown]
  - Chest pain [Unknown]
  - Memory impairment [Unknown]
  - Fluid intake restriction [Unknown]
  - Orchidectomy [Unknown]
  - Thirst [Recovered/Resolved]
  - Dry mouth [Unknown]
  - Eczema [Unknown]
  - Fatigue [Recovered/Resolved]
  - Headache [Unknown]
  - Hunger [Unknown]
  - Hyperacusis [Recovered/Resolved]
  - Weight increased [Unknown]

NARRATIVE: CASE EVENT DATE: 20170101
